FAERS Safety Report 24345081 (Version 3)
Quarter: 2024Q3

REPORT INFORMATION
  Report Type: Spontaneous
  Country: US (occurrence: US)
  Receive Date: 20240920
  Receipt Date: 20240927
  Transmission Date: 20241016
  Serious: No
  Sender: NOVARTIS
  Company Number: US-002147023-NVSC2024US184877

PATIENT

DRUGS (1)
  1. COSENTYX [Suspect]
     Active Substance: SECUKINUMAB
     Indication: Product used for unknown indication
     Dosage: UNK
     Route: 065

REACTIONS (8)
  - Fibromyalgia [Unknown]
  - Complex regional pain syndrome [Unknown]
  - Injection site bruising [Unknown]
  - Injection site pain [Unknown]
  - Peripheral swelling [Unknown]
  - Crying [Unknown]
  - Arthralgia [Unknown]
  - Discomfort [Unknown]
